FAERS Safety Report 9435684 (Version 1)
Quarter: 2013Q3

REPORT INFORMATION
  Report Type: Spontaneous
  Country: US (occurrence: US)
  Receive Date: 20130730
  Receipt Date: 20130730
  Transmission Date: 20140515
  Serious: No
  Sender: FDA-Public Use
  Company Number: 2013SA074724

PATIENT
  Age: 39 Year
  Sex: Female

DRUGS (1)
  1. ICY HOT [Suspect]
     Indication: BACK PAIN
     Dates: start: 20130709

REACTIONS (1)
  - Burns second degree [None]
